FAERS Safety Report 15195021 (Version 5)
Quarter: 2022Q2

REPORT INFORMATION
  Report Type: Spontaneous
  Country: US (occurrence: US)
  Receive Date: 20180725
  Receipt Date: 20220531
  Transmission Date: 20220721
  Serious: Yes (Other)
  Sender: FDA-Public Use
  Company Number: US-SA-2018SA200774

PATIENT
  Age: 76 Year
  Sex: Female

DRUGS (2)
  1. DUPIXENT [Suspect]
     Active Substance: DUPILUMAB
     Indication: Dermatitis atopic
     Dosage: 600 MG, 1X
     Route: 058
     Dates: start: 201801, end: 201801
  2. DUPIXENT [Suspect]
     Active Substance: DUPILUMAB
     Indication: Psoriasis
     Dosage: 300 MG,QOW
     Route: 058

REACTIONS (6)
  - Pelvic fracture [Unknown]
  - Breast cancer [Unknown]
  - Sunburn [Unknown]
  - Condition aggravated [Unknown]
  - Bronchitis [Unknown]
  - Product use in unapproved indication [Unknown]
